FAERS Safety Report 7544207-3 (Version None)
Quarter: 2011Q2

REPORT INFORMATION
  Report Type: 
  Country: None (occurrence: None)
  Receive Date: 20110613
  Receipt Date: 20061127
  Transmission Date: 20111010
  Serious: Yes (Death, Hospitalization)
  Sender: FDA-Public Use
  Company Number: PHMT2006CA01780

PATIENT
  Sex: Female

DRUGS (1)
  1. ZOMETA [Suspect]
     Indication: COLON CANCER
     Dosage: 4 MG, Q6H
     Dates: start: 20060309

REACTIONS (3)
  - SPINAL DISORDER [None]
  - DEATH [None]
  - PAIN [None]
